FAERS Safety Report 8810702 (Version 1)
Quarter: 2012Q4

REPORT INFORMATION
  Report Type: Spontaneous
  Country: US (occurrence: None)
  Receive Date: 20120924
  Receipt Date: 20120924
  Transmission Date: 20130627
  Serious: No
  Sender: FDA-Public Use
  Company Number: None

PATIENT
  Age: 17 Year
  Sex: Male

DRUGS (2)
  1. LITHIUM CARBONATE ER [Suspect]
     Route: 048
     Dates: start: 20120918
  2. TOPIRAMATE [Suspect]
     Route: 048
     Dates: start: 20120918

REACTIONS (2)
  - Wrong drug administered [None]
  - Paraesthesia [None]
